FAERS Safety Report 12867248 (Version 1)
Quarter: 2016Q4

REPORT INFORMATION
  Report Type: Report from Study
  Country: US (occurrence: US)
  Receive Date: 20161020
  Receipt Date: 20161020
  Transmission Date: 20170207
  Serious: Yes (Other)
  Sender: FDA-Public Use
  Company Number: US-CELGENEUS-USA-2016102734

PATIENT

DRUGS (8)
  1. IBRUTINIB [Suspect]
     Active Substance: IBRUTINIB
     Indication: B-CELL LYMPHOMA
     Route: 048
  2. ASPIRIN. [Concomitant]
     Active Substance: ASPIRIN
     Indication: THROMBOSIS PROPHYLAXIS
     Route: 065
  3. REVLIMID [Suspect]
     Active Substance: LENALIDOMIDE
     Route: 048
  4. IBRUTINIB [Suspect]
     Active Substance: IBRUTINIB
     Dosage: 300 MILLIGRAM
     Route: 048
  5. RITUXIMAB [Suspect]
     Active Substance: RITUXIMAB
     Indication: B-CELL LYMPHOMA
     Route: 041
  6. RITUXIMAB [Suspect]
     Active Substance: RITUXIMAB
     Route: 041
  7. ALLOPURINOL. [Concomitant]
     Active Substance: ALLOPURINOL
     Indication: PROPHYLAXIS
     Route: 065
  8. REVLIMID [Suspect]
     Active Substance: LENALIDOMIDE
     Indication: B-CELL LYMPHOMA
     Route: 048

REACTIONS (26)
  - Atrial flutter [Unknown]
  - B-cell lymphoma [Unknown]
  - Blood creatinine increased [Unknown]
  - Oedema [Unknown]
  - Pyrexia [Unknown]
  - Hypertension [Unknown]
  - Urinary tract infection [Unknown]
  - Neutropenia [Unknown]
  - Rash [Unknown]
  - Anaemia [Unknown]
  - Depression [Unknown]
  - Lymphopenia [Unknown]
  - Infection [Unknown]
  - Aspartate aminotransferase increased [Unknown]
  - Constipation [Unknown]
  - Hyperuricaemia [Unknown]
  - Hyperbilirubinaemia [Unknown]
  - Alanine aminotransferase increased [Unknown]
  - Periorbital oedema [Unknown]
  - Diarrhoea [Unknown]
  - Thrombocytopenia [Unknown]
  - Fatigue [Unknown]
  - Nausea [Unknown]
  - Infusion related reaction [Unknown]
  - Arthralgia [Unknown]
  - Neuropathy peripheral [Unknown]
